FAERS Safety Report 6906699-X (Version None)
Quarter: 2010Q3

REPORT INFORMATION
  Report Type: 
  Country: None (occurrence: None)
  Receive Date: 20100804
  Receipt Date: 20100727
  Transmission Date: 20110219
  Serious: Yes (Hospitalization)
  Sender: FDA-Public Use
  Company Number: US-AMGEN-KDL425048

PATIENT
  Sex: Male

DRUGS (3)
  1. ENBREL [Suspect]
     Indication: RHEUMATOID ARTHRITIS
     Route: 058
     Dates: start: 20090301
  2. PREDNISONE [Concomitant]
     Dates: start: 20070101
  3. METHOTREXATE [Concomitant]
     Dates: start: 20070101

REACTIONS (1)
  - RHEUMATOID ARTHRITIS [None]
